FAERS Safety Report 6035385-6 (Version None)
Quarter: 2009Q1

REPORT INFORMATION
  Report Type: 
  Country: None (occurrence: None)
  Receive Date: 20090112
  Receipt Date: 20090112
  Transmission Date: 20090719
  Serious: No
  Sender: FDA-Public Use
  Company Number: None

PATIENT
  Sex: Female
  Weight: 40.8237 kg

DRUGS (2)
  1. REQUIP [Suspect]
  2. ROPINIROLE [Suspect]

REACTIONS (4)
  - ADRENAL DISORDER [None]
  - BLOOD PRESSURE ORTHOSTATIC [None]
  - LOSS OF CONSCIOUSNESS [None]
  - PRODUCT QUALITY ISSUE [None]
